FAERS Safety Report 4692890-2 (Version None)
Quarter: 2005Q2

REPORT INFORMATION
  Report Type: 
  Country: None (occurrence: None)
  Receive Date: 20050615
  Receipt Date: 20050526
  Transmission Date: 20051028
  Serious: Yes (Death)
  Sender: FDA-Public Use
  Company Number: EWC050644256

PATIENT
  Age: 41 Year
  Sex: Male

DRUGS (3)
  1. XIGRIS [Suspect]
     Indication: SEPSIS
     Dosage: 24 UG/KG/HR
     Dates: start: 20050525, end: 20050525
  2. VITAMIN K [Concomitant]
  3. XIGRIS [Suspect]
     Indication: SEPSIS
     Dosage: 24 UG/KG/HR
     Dates: start: 20050526, end: 20050526

REACTIONS (3)
  - MULTI-ORGAN FAILURE [None]
  - PETECHIAE [None]
  - PLATELET COUNT DECREASED [None]
